FAERS Safety Report 14690387 (Version 1)
Quarter: 2018Q1

REPORT INFORMATION
  Report Type: Spontaneous
  Country: FR (occurrence: FR)
  Receive Date: 20180328
  Receipt Date: 20180328
  Transmission Date: 20180509
  Serious: Yes (Hospitalization)
  Sender: FDA-Public Use
  Company Number: FR-SA-2018SA084811

PATIENT
  Age: 86 Year
  Sex: Female
  Weight: 75 kg

DRUGS (1)
  1. PLAVIX [Suspect]
     Active Substance: CLOPIDOGREL BISULFATE
     Indication: CEREBROVASCULAR ACCIDENT
     Route: 048
     Dates: end: 20170422

REACTIONS (4)
  - Drug ineffective [Unknown]
  - Drug resistance [Unknown]
  - Ischaemic stroke [Recovered/Resolved with Sequelae]
  - Gene mutation [Recovered/Resolved with Sequelae]

NARRATIVE: CASE EVENT DATE: 20170422
